FAERS Safety Report 9851379 (Version 1)
Quarter: 2014Q1

REPORT INFORMATION
  Report Type: Report from Study
  Country: US (occurrence: US)
  Receive Date: 20140129
  Receipt Date: 20140129
  Transmission Date: 20141002
  Serious: Yes (Hospitalization)
  Sender: FDA-Public Use
  Company Number: US-ROCHE-1340463

PATIENT
  Sex: Female

DRUGS (2)
  1. ACTIVASE [Suspect]
     Indication: ANAEMIA
     Route: 065
     Dates: start: 20131124
  2. ACTIVASE [Suspect]
     Indication: MEDICAL DEVICE COMPLICATION

REACTIONS (1)
  - Anaemia [Unknown]
